FAERS Safety Report 7286081-9 (Version None)
Quarter: 2011Q1

REPORT INFORMATION
  Report Type: 
  Country: None (occurrence: None)
  Receive Date: 20110210
  Receipt Date: 20110203
  Transmission Date: 20110831
  Serious: Yes (Hospitalization)
  Sender: FDA-Public Use
  Company Number: GB-PFIZER INC-2009300085

PATIENT
  Age: 66 Year
  Sex: Female

DRUGS (6)
  1. CYCLOPHOSPHAMIDE [Suspect]
     Indication: BREAST CANCER
     Dosage: 850 MG, UNK
     Route: 042
     Dates: start: 20090319
  2. DOXORUBICIN [Suspect]
     Indication: BREAST CANCER
     Dosage: 85 MG, UNK
     Route: 042
     Dates: start: 20090319
  3. NEULASTA [Suspect]
     Dosage: 6 MG, UNK
     Route: 058
  4. FLUOROURACIL [Suspect]
     Indication: BREAST CANCER
     Dosage: 850 MG, UNK
     Route: 042
     Dates: start: 20090319
  5. CYCLOPHOSPHAMIDE [Suspect]
     Dosage: UNK
     Dates: start: 20090323
  6. NEULASTA [Suspect]
     Indication: CHEMOTHERAPY
     Dosage: 6 MG, CYCLIC
     Route: 058
     Dates: start: 20090324, end: 20090324

REACTIONS (5)
  - NEUTROPHIL COUNT DECREASED [None]
  - BODY TEMPERATURE INCREASED [None]
  - NERVOUSNESS [None]
  - MALAISE [None]
  - FEBRILE NEUTROPENIA [None]
